FAERS Safety Report 6898125-4 (Version None)
Quarter: 2010Q3

REPORT INFORMATION
  Report Type: 
  Country: None (occurrence: None)
  Receive Date: 20100802
  Receipt Date: 20070906
  Transmission Date: 20110219
  Serious: No
  Sender: FDA-Public Use
  Company Number: US-PFIZER INC-2007074591

PATIENT
  Sex: Female
  Weight: 53.1 kg

DRUGS (4)
  1. LYRICA [Suspect]
     Indication: FIBROMYALGIA
     Dates: start: 20070701
  2. PAXIL [Concomitant]
  3. ACTONEL [Concomitant]
  4. NEXIUM [Concomitant]

REACTIONS (2)
  - CONSTIPATION [None]
  - INCREASED APPETITE [None]
